FAERS Safety Report 5470268-1 (Version None)
Quarter: 2007Q3

REPORT INFORMATION
  Report Type: 
  Country: None (occurrence: None)
  Receive Date: 20070927
  Receipt Date: 20070920
  Transmission Date: 20080115
  Serious: Yes (Life-Threatening, Hospitalization)
  Sender: FDA-Public Use
  Company Number: US-ABBOTT-07P-163-0417698-00

PATIENT
  Sex: Female

DRUGS (4)
  1. AZMACORT INHALATION AEROSOL [Suspect]
     Indication: ASTHMA
     Route: 055
     Dates: start: 20060101
  2. SALBUTAMOL [Concomitant]
     Indication: ASTHMA
     Route: 055
  3. SALBUTAMOL [Concomitant]
     Route: 055
  4. VALSARTAN [Concomitant]
     Indication: HYPERTENSION

REACTIONS (3)
  - ASTHMA [None]
  - BRONCHOSPASM [None]
  - CHRONIC SINUSITIS [None]
